FAERS Safety Report 6466682-8 (Version None)
Quarter: 2009Q4

REPORT INFORMATION
  Report Type: 
  Country: None (occurrence: None)
  Receive Date: 20091118
  Receipt Date: 20090807
  Transmission Date: 20100525
  Serious: Yes (Hospitalization)
  Sender: FDA-Public Use
  Company Number: 2009BI022779

PATIENT
  Age: 44 Year
  Sex: Female

DRUGS (6)
  1. TYSABRI [Suspect]
     Indication: MULTIPLE SCLEROSIS
     Dosage: 300 MG; QM; IV
     Route: 042
     Dates: start: 20061208
  2. TYLENOL W/ CODEINE [Concomitant]
  3. COLACE [Concomitant]
  4. LACTULOSE [Concomitant]
  5. PAMELOR [Concomitant]
  6. AVONEX [Concomitant]

REACTIONS (3)
  - CHOLELITHIASIS [None]
  - OVARIAN FIBROMA [None]
  - POOR VENOUS ACCESS [None]
